FAERS Safety Report 17545433 (Version 2)
Quarter: 2020Q1

REPORT INFORMATION
  Report Type: Spontaneous
  Country: US (occurrence: US)
  Receive Date: 20200316
  Receipt Date: 20200317
  Transmission Date: 20200409
  Serious: No
  Sender: FDA-Public Use
  Company Number: US-009507513-2003USA002907

PATIENT
  Age: 32 Year
  Sex: Female
  Weight: 76.64 kg

DRUGS (2)
  1. NEXPLANON [Suspect]
     Active Substance: ETONOGESTREL
     Dosage: ROD EVERY 3 YEARS
     Route: 059
     Dates: start: 20200305, end: 20200305
  2. NEXPLANON [Suspect]
     Active Substance: ETONOGESTREL
     Dosage: ROD EVERY 3 YEARS
     Route: 059
     Dates: start: 20200305

REACTIONS (5)
  - Device difficult to use [Recovered/Resolved]
  - No adverse event [Unknown]
  - Complication of device insertion [Recovered/Resolved]
  - Device expulsion [Recovered/Resolved]
  - Product quality issue [Unknown]

NARRATIVE: CASE EVENT DATE: 20200305
